FAERS Safety Report 6234379-5 (Version None)
Quarter: 2009Q2

REPORT INFORMATION
  Report Type: 
  Country: None (occurrence: None)
  Receive Date: 20090616
  Receipt Date: 20090616
  Transmission Date: 20091009
  Serious: Yes (Life-Threatening)
  Sender: FDA-Public Use
  Company Number: None

PATIENT
  Age: 20 Year
  Sex: Male
  Weight: 66.3612 kg

DRUGS (2)
  1. ?TREN XTREME? MUSCLE ACTIVATOR 30MG AMERICAN CELLULAR LABS [Suspect]
     Indication: MUSCLE BUILDING THERAPY
     Dosage: 30MG THREE TIMES A DAY PO
     Route: 048
     Dates: start: 20090501, end: 20090528
  2. ?MASS XTREME? SIZE PROMOTOR 10MG AMERICAN CELLULAR LABS [Suspect]
     Indication: MUSCLE BUILDING THERAPY
     Dosage: 10MG THREE TIMES A DAY PO
     Route: 048
     Dates: start: 20090501, end: 20090528

REACTIONS (3)
  - CHROMATURIA [None]
  - JAUNDICE [None]
  - PRURITUS [None]
